FAERS Safety Report 13704372 (Version 1)
Quarter: 2017Q2

REPORT INFORMATION
  Report Type: Spontaneous
  Country: US (occurrence: US)
  Receive Date: 20170630
  Receipt Date: 20170630
  Transmission Date: 20170830
  Serious: No
  Sender: FDA-Public Use
  Company Number: US-ENDO PHARMACEUTICALS INC-2016-004423

PATIENT
  Sex: Female

DRUGS (1)
  1. LORAZEPAM TABLETS [Suspect]
     Active Substance: LORAZEPAM
     Indication: PRODUCT USED FOR UNKNOWN INDICATION
     Route: 065
     Dates: start: 201605

REACTIONS (2)
  - Flatulence [Unknown]
  - Gastrointestinal tract irritation [Unknown]

NARRATIVE: CASE EVENT DATE: 2016
